FAERS Safety Report 4623292-2 (Version None)
Quarter: 2005Q1

REPORT INFORMATION
  Report Type: 
  Country: None (occurrence: None)
  Receive Date: 20050329
  Receipt Date: 20050314
  Transmission Date: 20050727
  Serious: Yes (Hospitalization)
  Sender: FDA-Public Use
  Company Number: 213087

PATIENT
  Age: 68 Year
  Sex: Female

DRUGS (4)
  1. AVASTIN [Suspect]
     Indication: COLORECTAL CANCER METASTATIC
     Dosage: 5 MG/KG, Q2W, INTRAVENOUS
     Route: 042
     Dates: start: 20040610
  2. OXALIPLATIN (OXALIPLATIN) [Concomitant]
  3. FLUOROURACIL [Concomitant]
  4. ROCEPHIN [Concomitant]

REACTIONS (19)
  - BLOOD GLUCOSE INCREASED [None]
  - BLOOD PRESSURE INCREASED [None]
  - COMA [None]
  - CSF PROTEIN INCREASED [None]
  - ELECTROENCEPHALOGRAM ABNORMAL [None]
  - GLUCOSE URINE PRESENT [None]
  - GRAND MAL CONVULSION [None]
  - HEART RATE INCREASED [None]
  - LABORATORY TEST ABNORMAL [None]
  - LUNG INFILTRATION [None]
  - NUCLEAR MAGNETIC RESONANCE IMAGING BRAIN ABNORMAL [None]
  - PNEUMONIA PRIMARY ATYPICAL [None]
  - PULMONARY OEDEMA [None]
  - PUPILLARY REFLEX IMPAIRED [None]
  - PYREXIA [None]
  - RESPIRATORY RATE INCREASED [None]
  - SUBCLAVIAN VEIN THROMBOSIS [None]
  - UNRESPONSIVE TO VERBAL STIMULI [None]
  - URINE KETONE BODY PRESENT [None]
